FAERS Safety Report 19913420 (Version 1)
Quarter: 2021Q4

REPORT INFORMATION
  Report Type: Report from Study
  Country: IE (occurrence: IE)
  Receive Date: 20211004
  Receipt Date: 20211004
  Transmission Date: 20220303
  Serious: Yes (Hospitalization)
  Sender: FDA-Public Use
  Company Number: IE-PFIZER INC-202101259705

PATIENT
  Weight: 24.2 kg

DRUGS (20)
  1. MITOXANTRONE HYDROCHLORIDE [Suspect]
     Active Substance: MITOXANTRONE HYDROCHLORIDE
     Indication: Acute myeloid leukaemia
     Dosage: 12 MG/M2, 1X/DAY
     Route: 042
     Dates: start: 20210901, end: 20210904
  2. GEMTUZUMAB OZOGAMICIN [Suspect]
     Active Substance: GEMTUZUMAB OZOGAMICIN
     Indication: Acute myeloid leukaemia
     Dosage: 3 MG (OTHER)
     Route: 042
     Dates: start: 20210906, end: 20210906
  3. POSACONAZOLE [Concomitant]
     Active Substance: POSACONAZOLE
     Indication: Antifungal treatment
     Dosage: 220 MG, 2X/DAY
     Dates: start: 20210913, end: 20210917
  4. VANCO CELL [Concomitant]
     Indication: Device related infection
     Dosage: 0.5 ML, ALTERNATE DAY
     Dates: start: 20210913, end: 20210917
  5. VANCO CELL [Concomitant]
     Dosage: 0.8 ML, ALTERNATE DAY
     Dates: start: 20210914, end: 20210917
  6. CHLORHEXIDINE HYDROCHLORIDE\NEOMYCIN SULFATE [Concomitant]
     Active Substance: CHLORHEXIDINE HYDROCHLORIDE\NEOMYCIN SULFATE
     Indication: Prophylaxis
     Dosage: UNK UNK, 2X/DAY
     Dates: start: 20210908, end: 20210917
  7. TRANEXAMIC ACID [Concomitant]
     Active Substance: TRANEXAMIC ACID
     Indication: Prophylaxis
     Dosage: 360 MG, 3X/DAY
     Dates: start: 20210910, end: 20210914
  8. ACETAMINOPHEN [Concomitant]
     Active Substance: ACETAMINOPHEN
     Indication: Pain
     Dosage: 370 MG, AS NEEDED
     Dates: start: 20210831, end: 20210914
  9. HEPARIN SODIUM [Concomitant]
     Active Substance: HEPARIN SODIUM
     Indication: Prophylaxis
     Dosage: 2.5 ML, 3X/DAY
     Dates: start: 20210901, end: 20210915
  10. OXYCODONE HYDROCHLORIDE [Concomitant]
     Active Substance: OXYCODONE HYDROCHLORIDE
     Indication: Pain
     Dosage: 2.5 MG, AS NEEDED
     Dates: start: 20210909, end: 20210909
  11. PIPERACILLIN SODIUM\TAZOBACTAM SODIUM [Concomitant]
     Active Substance: PIPERACILLIN SODIUM\TAZOBACTAM SODIUM
     Indication: Antibiotic therapy
     Dosage: 2.5 ML, 4X/DAY
     Dates: start: 20210830, end: 20210909
  12. PIPERACILLIN SODIUM\TAZOBACTAM SODIUM [Concomitant]
     Active Substance: PIPERACILLIN SODIUM\TAZOBACTAM SODIUM
     Dosage: 2.5 MG, 4X/DAY
     Dates: start: 20210906, end: 20210909
  13. AMBISOME [Concomitant]
     Active Substance: AMPHOTERICIN B
     Indication: Antifungal treatment
     Dosage: 28 MG, ALTERNATE DAY
     Dates: start: 20210901, end: 20210915
  14. SULFAMETHOXAZOLE\TRIMETHOPRIM [Concomitant]
     Active Substance: SULFAMETHOXAZOLE\TRIMETHOPRIM
     Indication: Antibiotic therapy
     Dosage: 480 MG, 2X/DAY
     Dates: start: 20210911, end: 20210912
  15. GENTAMICIN [Concomitant]
     Active Substance: GENTAMICIN
     Indication: Antibiotic therapy
     Dosage: 180 MG, 1X/DAY
     Dates: start: 20210906, end: 20210907
  16. ONDANSETRON [Concomitant]
     Active Substance: ONDANSETRON
     Indication: Vomiting
     Dosage: 5 MG, 3X/DAY
     Dates: start: 20210901, end: 20210917
  17. OMEPRAZOLE [Concomitant]
     Active Substance: OMEPRAZOLE
     Indication: Gastrooesophageal reflux disease
     Dosage: 20 MG, 1X/DAY
     Dates: start: 20210905, end: 20210917
  18. CYCLIZINE [Concomitant]
     Active Substance: CYCLIZINE
     Indication: Vomiting
     Dosage: 25 MG, 4X/DAY
     Dates: start: 20210906, end: 20210917
  19. ESOMEPRAZOLE. [Concomitant]
     Active Substance: ESOMEPRAZOLE MAGNESIUM
     Indication: Gastrooesophageal reflux disease
     Dosage: 20 MG (ONE DOSE)
     Dates: start: 20210910, end: 20210910
  20. FUROSEMIDE [Concomitant]
     Active Substance: FUROSEMIDE
     Indication: Diuretic therapy
     Dosage: 20 MG (ONE DOSE)
     Dates: start: 20210908, end: 20210908

REACTIONS (1)
  - Febrile neutropenia [Not Recovered/Not Resolved]

NARRATIVE: CASE EVENT DATE: 20210921
